FAERS Safety Report 8889363 (Version 1)
Quarter: 2012Q4

REPORT INFORMATION
  Report Type: Spontaneous
  Country: US (occurrence: None)
  Receive Date: 20121102
  Receipt Date: 20121102
  Transmission Date: 20130627
  Serious: No
  Sender: FDA-Public Use
  Company Number: None

PATIENT
  Age: 69 Year
  Sex: Male
  Weight: 56.7 kg

DRUGS (3)
  1. BACLOFEN [Suspect]
     Indication: BACK PAIN
     Dosage: 1 tablet
     Route: 048
     Dates: start: 20121024, end: 20121025
  2. BACLOFEN [Suspect]
     Indication: NECK PAIN
     Dosage: 1 tablet
     Route: 048
     Dates: start: 20121024, end: 20121025
  3. BACLOFEN [Suspect]
     Indication: MUSCLE SPASM
     Dosage: 1 tablet
     Route: 048
     Dates: start: 20121024, end: 20121025

REACTIONS (2)
  - Depression [None]
  - Suicidal ideation [None]
